FAERS Safety Report 21311357 (Version 1)
Quarter: 2022Q3

REPORT INFORMATION
  Report Type: Other
  Country: None (occurrence: QA)
  Receive Date: 20220909
  Receipt Date: 20220909
  Transmission Date: 20221027
  Serious: Yes (Life-Threatening, Hospitalization, Other)
  Sender: FDA-Public Use
  Company Number: QA-Innogenix, LLC-2132701

PATIENT
  Age: 46 Year
  Sex: Female

DRUGS (3)
  1. PROPRANOLOL HYDROCHLORIDE [Suspect]
     Active Substance: PROPRANOLOL HYDROCHLORIDE
     Indication: Thyrotoxic crisis
     Route: 042
  2. HYDROCORTISONE (HYDROCORTISONE ACETATE) [Concomitant]
     Active Substance: HYDROCORTISONE ACETATE
     Route: 065
  3. PROPYLTHIOURACIL [Concomitant]
     Active Substance: PROPYLTHIOURACIL
     Route: 048

REACTIONS (5)
  - Tachypnoea [Recovered/Resolved]
  - Restlessness [Recovered/Resolved]
  - Hypoxia [Recovered/Resolved]
  - Respiratory failure [Recovered/Resolved]
  - Product use in unapproved indication [Unknown]
